FAERS Safety Report 8601052-5 (Version None)
Quarter: 2012Q3

REPORT INFORMATION
  Report Type: 
  Country: None (occurrence: None)
  Receive Date: 20120806
  Receipt Date: 20120723
  Transmission Date: 20120928
  Serious: Yes (Hospitalization, Other)
  Sender: FDA-Public Use
  Company Number: 2012AP002204

PATIENT
  Age: 45 Year
  Sex: Male

DRUGS (2)
  1. GABAPENTIN [Suspect]
     Indication: PAIN
  2. TRAMADOL HYDROCHLORIDE [Suspect]
     Indication: PAIN

REACTIONS (16)
  - HAEMATOCHEZIA [None]
  - WRONG TECHNIQUE IN DRUG USAGE PROCESS [None]
  - OESOPHAGEAL SPASM [None]
  - VOMITING [None]
  - CHEST PAIN [None]
  - ABDOMINAL PAIN UPPER [None]
  - IMPAIRED GASTRIC EMPTYING [None]
  - FEELING ABNORMAL [None]
  - HAEMATEMESIS [None]
  - EMOTIONAL DISTRESS [None]
  - LIMB OPERATION [None]
  - GASTRIC DILATATION [None]
  - EROSIVE OESOPHAGITIS [None]
  - OESOPHAGEAL HAEMORRHAGE [None]
  - HICCUPS [None]
  - LOWER LIMB FRACTURE [None]
